FAERS Safety Report 8361042-7 (Version None)
Quarter: 2012Q2

REPORT INFORMATION
  Report Type: 
  Country: None (occurrence: None)
  Receive Date: 20120515
  Receipt Date: 20120503
  Transmission Date: 20120825
  Serious: Yes (Other)
  Sender: FDA-Public Use
  Company Number: US-ROCHE-1031009

PATIENT
  Sex: Female
  Weight: 67.192 kg

DRUGS (3)
  1. XELODA [Suspect]
     Dosage: 150 MG 2 TABLETS TWO PER ONE DAY
     Route: 048
     Dates: start: 20110926
  2. XELODA [Suspect]
     Indication: PRODUCT USED FOR UNKNOWN INDICATION
     Dosage: 500 MG 2 TABLETS TWO PER ONE DAY
     Route: 048
     Dates: start: 20110926
  3. AVASTIN [Suspect]
     Indication: COLORECTAL CANCER METASTATIC
     Route: 042

REACTIONS (3)
  - CARCINOEMBRYONIC ANTIGEN INCREASED [None]
  - ALOPECIA [None]
  - LACRIMATION INCREASED [None]
